FAERS Safety Report 9318973 (Version 2)
Quarter: 2013Q3

REPORT INFORMATION
  Report Type: Spontaneous
  Country: US (occurrence: US)
  Receive Date: 20130530
  Receipt Date: 20130701
  Transmission Date: 20140515
  Serious: Yes (Hospitalization)
  Sender: FDA-Public Use
  Company Number: US-ELI_LILLY_AND_COMPANY-US201305007190

PATIENT
  Age: 65 Year
  Sex: Male
  Weight: 82.54 kg

DRUGS (2)
  1. HUMALOG LISPRO [Suspect]
     Indication: TYPE 1 DIABETES MELLITUS
     Route: 058
  2. HUMALOG LISPRO [Suspect]
     Dosage: 75 U, QD
     Route: 058

REACTIONS (7)
  - Blood glucose increased [Recovered/Resolved]
  - Wound [Recovered/Resolved]
  - Impaired healing [Recovered/Resolved]
  - Hypertension [Recovered/Resolved]
  - Glycosylated haemoglobin increased [Unknown]
  - Blood glucose increased [Recovered/Resolved]
  - Drug ineffective [Recovered/Resolved]
